FAERS Safety Report 14756939 (Version 1)
Quarter: 2018Q2

REPORT INFORMATION
  Report Type: Spontaneous
  Country: US (occurrence: US)
  Receive Date: 20180408
  Receipt Date: 20180408
  Transmission Date: 20180711
  Serious: Yes (Life-Threatening, Hospitalization, Other)
  Sender: FDA-Public Use
  Company Number: None

PATIENT
  Age: 47 Year
  Sex: Male
  Weight: 101.25 kg

DRUGS (9)
  1. ZYVOX [Concomitant]
     Active Substance: LINEZOLID
  2. FLEXERIL [Concomitant]
     Active Substance: CYCLOBENZAPRINE HYDROCHLORIDE
  3. AMBIEN [Concomitant]
     Active Substance: ZOLPIDEM TARTRATE
  4. ORBACTIV [Suspect]
     Active Substance: ORITAVANCIN
     Indication: STAPHYLOCOCCAL INFECTION
     Dosage: ?          QUANTITY:1 INJECTION(S);?
     Route: 042
     Dates: start: 20180326, end: 20180408
  5. ALLEGRA [Concomitant]
     Active Substance: FEXOFENADINE HYDROCHLORIDE
  6. NAPROXEN. [Concomitant]
     Active Substance: NAPROXEN
  7. ORBACTIV [Suspect]
     Active Substance: ORITAVANCIN
     Indication: SINUSITIS
     Dosage: ?          QUANTITY:1 INJECTION(S);?
     Route: 042
     Dates: start: 20180326, end: 20180408
  8. FLONASE [Concomitant]
     Active Substance: FLUTICASONE PROPIONATE
  9. MUPIROCIN. [Concomitant]
     Active Substance: MUPIROCIN

REACTIONS (6)
  - Condition aggravated [None]
  - Product quality issue [None]
  - Drug ineffective [None]
  - Seizure [None]
  - Staphylococcal infection [None]
  - Headache [None]

NARRATIVE: CASE EVENT DATE: 20180326
